FAERS Safety Report 9593081 (Version 2)
Quarter: 2013Q4

REPORT INFORMATION
  Report Type: Spontaneous
  Country: IT (occurrence: IT)
  Receive Date: 20131004
  Receipt Date: 20131028
  Transmission Date: 20140711
  Serious: Yes (Hospitalization)
  Sender: FDA-Public Use
  Company Number: IT-SA-2013SA096242

PATIENT
  Age: 41 Year
  Sex: Male

DRUGS (1)
  1. STILNOX [Suspect]
     Indication: INTENTIONAL SELF-INJURY
     Route: 048
     Dates: start: 20130611, end: 20130611

REACTIONS (2)
  - Haematuria [Unknown]
  - Toxicity to various agents [Unknown]
